FAERS Safety Report 9426778 (Version 1)
Quarter: 2013Q3

REPORT INFORMATION
  Report Type: Spontaneous
  Country: US (occurrence: US)
  Receive Date: 20130730
  Receipt Date: 20130730
  Transmission Date: 20140515
  Serious: No
  Sender: FDA-Public Use
  Company Number: US-SANOFI-AVENTIS-2012SA069964

PATIENT
  Age: 73 Year
  Sex: Female

DRUGS (2)
  1. AMBIEN CR [Suspect]
     Route: 048
     Dates: start: 2011
  2. AMBIEN [Suspect]
     Route: 048
     Dates: start: 2004

REACTIONS (8)
  - Conjunctivitis [Not Recovered/Not Resolved]
  - Eye pain [Not Recovered/Not Resolved]
  - Eye irritation [Not Recovered/Not Resolved]
  - Lacrimation increased [Not Recovered/Not Resolved]
  - Ocular hyperaemia [Not Recovered/Not Resolved]
  - Photopsia [Unknown]
  - Tinnitus [Unknown]
  - Incorrect drug administration duration [Unknown]
